FAERS Safety Report 20646482 (Version 1)
Quarter: 2022Q1

REPORT INFORMATION
  Report Type: Spontaneous
  Country: US (occurrence: US)
  Receive Date: 20220329
  Receipt Date: 20220329
  Transmission Date: 20220423
  Serious: No
  Sender: FDA-Public Use
  Company Number: US-JNJFOC-20220328698

PATIENT
  Sex: Female

DRUGS (1)
  1. TREMFYA [Suspect]
     Active Substance: GUSELKUMAB
     Indication: Guttate psoriasis
     Route: 058

REACTIONS (5)
  - Product dose omission issue [Unknown]
  - Bone pain [Unknown]
  - Swelling [Unknown]
  - Off label use [Unknown]
  - Product use in unapproved indication [Unknown]
